FAERS Safety Report 4594293-8 (Version None)
Quarter: 2005Q1

REPORT INFORMATION
  Report Type: 
  Country: None (occurrence: None)
  Receive Date: 20050301
  Receipt Date: 20040920
  Transmission Date: 20050727
  Serious: No
  Sender: FDA-Public Use
  Company Number: US-GLAXOSMITHKLINE-A0526631A

PATIENT
  Age: 28 Year
  Sex: Female

DRUGS (3)
  1. VALTREX [Suspect]
     Route: 048
  2. IMURAN [Concomitant]
     Indication: CROHN'S DISEASE
  3. REMICADE [Concomitant]
     Indication: CROHN'S DISEASE

REACTIONS (1)
  - HERPES ZOSTER [None]
